FAERS Safety Report 15500373 (Version 1)
Quarter: 2018Q4

REPORT INFORMATION
  Report Type: Spontaneous
  Country: DK (occurrence: DK)
  Receive Date: 20181015
  Receipt Date: 20181015
  Transmission Date: 20190205
  Serious: Yes (Life-Threatening, Hospitalization)
  Sender: FDA-Public Use
  Company Number: PHHY2018DK125157

PATIENT

DRUGS (13)
  1. CONTALGIN [Concomitant]
     Active Substance: MORPHINE SULFATE
     Indication: PAIN
     Dosage: STYRKE: 30 MG.
     Route: 048
     Dates: start: 20180710
  2. ELTROXIN [Concomitant]
     Active Substance: LEVOTHYROXINE
     Indication: HYPOTHYROIDISM
     Dosage: STYRKE: 100MIKROGRAM DOSIS: EFTER SKEMA.
     Route: 048
  3. BUDESONID ORIFARM [Concomitant]
     Indication: COLITIS ULCERATIVE
     Dosage: STYRKE: 2 MG
     Route: 054
     Dates: start: 20180517
  4. KISQALI [Suspect]
     Active Substance: RIBOCICLIB
     Indication: BREAST CANCER METASTATIC
     Dosage: STYRKE: 200 MG.
     Route: 048
     Dates: start: 20180727, end: 20180920
  5. MESAVANCOL [Concomitant]
     Active Substance: MESALAMINE
     Indication: COLITIS ULCERATIVE
     Dosage: 4800 MG, UNK, STYRKE: 1200MG
     Route: 048
     Dates: start: 2016
  6. MORFIN ALTERNOVA [Concomitant]
     Indication: PAIN
     Dosage: STYRKE: 10 MG DOSIS: 1 TABL EFTER BEHOV, H?JEST 3 GANGE DAGLIGT.
     Route: 048
     Dates: start: 20180716
  7. ONDANSETRON STADA [Concomitant]
     Indication: NAUSEA
     Dosage: 16 MG, QD, STYRKE: 8 MG
     Route: 048
     Dates: start: 20180823
  8. ZOLEDRONSYRE HOSPIRA [Concomitant]
     Active Substance: ZOLEDRONIC ACID
     Indication: METASTASES TO BONE
     Dosage: STYRKE: 4MG/100ML
     Route: 065
     Dates: start: 20180727
  9. PARACETAMOL ORIFARM [Concomitant]
     Indication: PAIN
     Dosage: 4000 MG, QD, STYRKE: 500 MG.
     Route: 048
     Dates: start: 20180504
  10. IMOLOPE [Concomitant]
     Indication: DIARRHOEA
     Dosage: STYRKE: 2 MG DOSIS: 2MG EFTER BEHOV
     Route: 048
     Dates: start: 20180803
  11. PENTASA [Concomitant]
     Active Substance: MESALAMINE
     Indication: COLITIS ULCERATIVE
     Dosage: 2 G, QD
     Route: 054
     Dates: start: 2016
  12. LETROZOL ORION [Concomitant]
     Indication: BREAST CANCER METASTATIC
     Dosage: STYRKE: 2,5 MG.
     Route: 048
     Dates: start: 20180727
  13. METOCLOPRAMIDE DIHYDROCHLORIDE [Concomitant]
     Indication: NAUSEA
     Dosage: STYRKE: 10 MGDOSIS: 1TABL EFTER BEHOV, H?JEST 4 GANGE DAGLIGT.
     Route: 048
     Dates: start: 20170727

REACTIONS (4)
  - Colitis [Not Recovered/Not Resolved]
  - Vomiting [Not Recovered/Not Resolved]
  - Nausea [Not Recovered/Not Resolved]
  - Diarrhoea haemorrhagic [Not Recovered/Not Resolved]

NARRATIVE: CASE EVENT DATE: 20180918
